FAERS Safety Report 4357110-7 (Version None)
Quarter: 2004Q2

REPORT INFORMATION
  Report Type: 
  Country: None (occurrence: None)
  Receive Date: 20040512
  Receipt Date: 20040507
  Transmission Date: 20050107
  Serious: Yes (Other)
  Sender: FDA-Public Use
  Company Number: US-BRISTOL-MYERS SQUIBB COMPANY-12582060

PATIENT
  Age: 59 Year
  Sex: Male

DRUGS (2)
  1. ERBITUX [Suspect]
     Indication: COLON CANCER METASTATIC
     Dosage: ONE TREATMENT
     Route: 042
  2. PREVACID [Concomitant]

REACTIONS (1)
  - BLOOD BILIRUBIN INCREASED [None]
